FAERS Safety Report 18457967 (Version 1)
Quarter: 2020Q4

REPORT INFORMATION
  Report Type: Spontaneous
  Country: US (occurrence: US)
  Receive Date: 20201103
  Receipt Date: 20201103
  Transmission Date: 20210114
  Serious: No
  Sender: FDA-Public Use
  Company Number: US-TARO-2020TAR01151

PATIENT

DRUGS (1)
  1. MUPIROCIN OINTMENT USP 2% [Suspect]
     Active Substance: MUPIROCIN
     Indication: RHINITIS
     Dosage: BID, DAILY FOR 14 DAYS BY INTRANASAL ROUTE
     Route: 045

REACTIONS (4)
  - Nasal congestion [Recovered/Resolved]
  - Dyspnoea [Recovered/Resolved]
  - Nasal dryness [Recovered/Resolved]
  - Off label use [Unknown]
